FAERS Safety Report 4353162-9 (Version None)
Quarter: 2004Q2

REPORT INFORMATION
  Report Type: 
  Country: None (occurrence: None)
  Receive Date: 20040503
  Receipt Date: 20040503
  Transmission Date: 20050107
  Serious: Yes (Hospitalization)
  Sender: FDA-Public Use
  Company Number: None

PATIENT
  Age: 68 Year

DRUGS (8)
  1. ENOXAPARIN SODIUM [Suspect]
     Indication: DEEP VEIN THROMBOSIS
  2. LASIX [Concomitant]
  3. RABEPRAZOLE SODIUM [Concomitant]
  4. METOPROLOL [Concomitant]
  5. TERAZOSIN HCL [Concomitant]
  6. KCL TAB [Concomitant]
  7. DILTIAZEM [Concomitant]
  8. FERROUS GLUCONATE [Concomitant]

REACTIONS (3)
  - ABDOMINAL PAIN LOWER [None]
  - HAEMATOMA [None]
  - INTERNATIONAL NORMALISED RATIO INCREASED [None]
